FAERS Safety Report 6955878-4 (Version None)
Quarter: 2010Q3

REPORT INFORMATION
  Report Type: 
  Country: None (occurrence: None)
  Receive Date: 20100826
  Receipt Date: 20100826
  Transmission Date: 20110219
  Serious: Yes (Hospitalization)
  Sender: FDA-Public Use
  Company Number: None

PATIENT
  Age: 47 Year
  Sex: Female
  Weight: 61.6892 kg

DRUGS (2)
  1. VENLAFAXINE [Suspect]
     Indication: ANXIETY
     Dosage: 100 MG GWICE DAILY PO
     Route: 048
     Dates: start: 20100820, end: 20100820
  2. VENLAFAXINE [Suspect]
     Indication: DEPRESSION
     Dosage: 100 MG GWICE DAILY PO
     Route: 048
     Dates: start: 20100820, end: 20100820

REACTIONS (10)
  - CHEST PAIN [None]
  - DIARRHOEA [None]
  - GAIT DISTURBANCE [None]
  - HEART RATE INCREASED [None]
  - HYPOAESTHESIA [None]
  - PARAESTHESIA [None]
  - RESPIRATORY RATE INCREASED [None]
  - THINKING ABNORMAL [None]
  - TREMOR [None]
  - VOMITING [None]
